FAERS Safety Report 18845636 (Version 1)
Quarter: 2021Q1

REPORT INFORMATION
  Report Type: Report from Study
  Country: US (occurrence: US)
  Receive Date: 20210203
  Receipt Date: 20210203
  Transmission Date: 20210419
  Serious: No
  Sender: FDA-Public Use
  Company Number: US-EXELIXIS-CABO-20029072

PATIENT
  Age: 67 Year
  Sex: Male
  Weight: 84.08 kg

DRUGS (3)
  1. CABOMETYX [Suspect]
     Active Substance: CABOZANTINIB S-MALATE
     Indication: RENAL CANCER
     Dosage: 60 MG, QD
     Route: 048
     Dates: start: 20200326
  2. CABOMETYX [Suspect]
     Active Substance: CABOZANTINIB S-MALATE
     Dosage: 40 MG, QD
     Route: 048
  3. CABOMETYX [Suspect]
     Active Substance: CABOZANTINIB S-MALATE
     Dosage: 40 MG DAILY FOR ONE WEEK ON THEN ONE WEEK OFF
     Route: 048

REACTIONS (6)
  - Oral pain [Recovering/Resolving]
  - Fatigue [Recovering/Resolving]
  - Skin exfoliation [Unknown]
  - Stomatitis [Unknown]
  - Pain in extremity [Recovering/Resolving]
  - Inappropriate schedule of product administration [Unknown]

NARRATIVE: CASE EVENT DATE: 202004
